FAERS Safety Report 12157627 (Version 3)
Quarter: 2019Q4

REPORT INFORMATION
  Report Type: Report from Study
  Country: US (occurrence: US)
  Receive Date: 20160308
  Receipt Date: 20191021
  Transmission Date: 20200122
  Serious: Yes (Disabling, Congenital Anomaly, Other)
  Sender: FDA-Public Use
  Company Number: US-ACCORD-038537

PATIENT
  Sex: Male

DRUGS (1)
  1. METHOTREXATE. [Suspect]
     Active Substance: METHOTREXATE
     Indication: ABORTION INDUCED
     Dosage: 60 MG OF MTX AT 8 WEEKS POSTCONCEPTION
     Route: 064

REACTIONS (13)
  - Craniosynostosis [Recovered/Resolved]
  - Clinodactyly [Unknown]
  - Adactyly [Unknown]
  - Arnold-Chiari malformation [Unknown]
  - Premature baby [Unknown]
  - Hydrocephalus [Unknown]
  - Feeding tube user [Unknown]
  - Hypertelorism of orbit [Unknown]
  - Microcephaly [Unknown]
  - Synostosis [Unknown]
  - Foetal exposure during pregnancy [Unknown]
  - Brachydactyly [Unknown]
  - Foetal methotrexate syndrome [Unknown]
